FAERS Safety Report 20488975 (Version 1)
Quarter: 2022Q1

REPORT INFORMATION
  Report Type: Spontaneous
  Country: FR (occurrence: FR)
  Receive Date: 20220218
  Receipt Date: 20220218
  Transmission Date: 20220424
  Serious: Yes (Hospitalization)
  Sender: FDA-Public Use
  Company Number: None

PATIENT
  Age: 85 Year
  Sex: Male
  Weight: 54 kg

DRUGS (11)
  1. PANTOPRAZOLE [Suspect]
     Active Substance: PANTOPRAZOLE
     Indication: Gastric ulcer
     Dosage: 40 MG
     Route: 048
     Dates: start: 20211123, end: 20211227
  2. AUGMENTIN [Suspect]
     Active Substance: AMOXICILLIN\CLAVULANATE POTASSIUM
     Indication: Antibiotic therapy
     Dosage: NOT REPORTED
     Route: 048
     Dates: start: 20211124, end: 20211130
  3. OMNIPAQUE [Suspect]
     Active Substance: IOHEXOL
     Indication: Computerised tomogram
     Dosage: NOT REPORTED
     Route: 042
     Dates: start: 20211130, end: 20211130
  4. EZETIMIBE [Concomitant]
     Active Substance: EZETIMIBE
     Dosage: EZETROL 10 MG, TABLET
  5. NEBIVOLOL [Concomitant]
     Active Substance: NEBIVOLOL
  6. RILMENIDINE PHOSPHATE [Concomitant]
     Active Substance: RILMENIDINE PHOSPHATE
     Dosage: HYPERIUM 1MG, TABLET
  7. KARDEGIC [Concomitant]
     Active Substance: ASPIRIN DL-LYSINE
     Dosage: KARDEGIC 75 MG, POWDER FOR ORAL SOLUTION IN SACHET-DOSE
  8. CALCIUM CARBONATE\CHOLECALCIFEROL [Concomitant]
     Active Substance: CALCIUM CARBONATE\CHOLECALCIFEROL
  9. LERCANIDIPINE [Concomitant]
     Active Substance: LERCANIDIPINE
  10. FUROSEMIDE [Concomitant]
     Active Substance: FUROSEMIDE
     Dosage: LASILIX SPECIAL 500 MG, SCORED TABLET
  11. KAYEXALATE [Concomitant]
     Active Substance: SODIUM POLYSTYRENE SULFONATE
     Dosage: KAYEXALATE, POWDER FOR ORAL AND RECTAL SUSPENSION

REACTIONS (2)
  - Eosinophilia [Not Recovered/Not Resolved]
  - Rash maculo-papular [Not Recovered/Not Resolved]

NARRATIVE: CASE EVENT DATE: 20211201
